FAERS Safety Report 25461987 (Version 1)
Quarter: 2025Q2

REPORT INFORMATION
  Report Type: Spontaneous
  Country: US (occurrence: None)
  Receive Date: 20250619
  Receipt Date: 20250619
  Transmission Date: 20250716
  Serious: Yes (unspecified)
  Sender: FDA-CTU
  Company Number: None

PATIENT
  Age: 29 Year
  Sex: Female

DRUGS (1)
  1. INFED [Suspect]
     Active Substance: IRON DEXTRAN
     Indication: Anaemia
     Route: 042
     Dates: start: 20250616, end: 20250616

REACTIONS (2)
  - Dyspnoea [None]
  - Hypersensitivity [None]

NARRATIVE: CASE EVENT DATE: 20250619
